FAERS Safety Report 21491611 (Version 1)
Quarter: 2022Q4

REPORT INFORMATION
  Report Type: Spontaneous
  Country: KR (occurrence: KR)
  Receive Date: 20221021
  Receipt Date: 20221021
  Transmission Date: 20230113
  Serious: Yes (Other)
  Sender: FDA-Public Use
  Company Number: KR-ASTELLAS PHARMA EUROPE B.V.-2022US036675

PATIENT
  Sex: Female

DRUGS (2)
  1. HARNAL [Suspect]
     Active Substance: TAMSULOSIN HYDROCHLORIDE
     Indication: Product used for unknown indication
     Dosage: 0.2 MG, QD
     Route: 065
     Dates: start: 20221008
  2. MIRABEGRON [Suspect]
     Active Substance: MIRABEGRON
     Indication: Cystitis
     Dosage: 50 MG, QD
     Route: 048

REACTIONS (7)
  - Urinary retention [Unknown]
  - Abdominal pain upper [Unknown]
  - Urethral pain [Unknown]
  - Insomnia [Unknown]
  - Loss of personal independence in daily activities [Unknown]
  - Off label use [Unknown]
  - Intentional product use issue [Unknown]

NARRATIVE: CASE EVENT DATE: 20221008
